FAERS Safety Report 7973207-4 (Version None)
Quarter: 2011Q4

REPORT INFORMATION
  Report Type: 
  Country: None (occurrence: None)
  Receive Date: 20111213
  Receipt Date: 20111129
  Transmission Date: 20120403
  Serious: Yes (Hospitalization)
  Sender: FDA-Public Use
  Company Number: PHHY2011US16105

PATIENT
  Sex: Female
  Weight: 53 kg

DRUGS (11)
  1. PREDNISONE TAB [Concomitant]
  2. MIRALAX [Concomitant]
  3. VITAMIN D [Concomitant]
  4. PRILOSEC [Concomitant]
  5. EXJADE [Suspect]
     Indication: SICKLE CELL ANAEMIA
     Dosage: 1500 MG DAILY
     Route: 048
     Dates: start: 20080201
  6. CALCIUM [Concomitant]
  7. LEVAQUIN [Concomitant]
  8. ZONEGRAN [Concomitant]
  9. KEPPRA [Concomitant]
  10. ASCORBIC ACID [Concomitant]
  11. TRILEPTAL [Concomitant]

REACTIONS (7)
  - SICKLE CELL ANAEMIA WITH CRISIS [None]
  - DIARRHOEA [None]
  - CONSTIPATION [None]
  - URINARY INCONTINENCE [None]
  - MUSCULOSKELETAL CHEST PAIN [None]
  - BACK PAIN [None]
  - PNEUMONIA [None]
